FAERS Safety Report 5060180-4 (Version None)
Quarter: 2006Q3

REPORT INFORMATION
  Report Type: 
  Country: None (occurrence: None)
  Receive Date: 20060719
  Receipt Date: 20060710
  Transmission Date: 20061208
  Serious: Yes (Hospitalization)
  Sender: FDA-Public Use
  Company Number: 2006-06-0987

PATIENT
  Age: 60 Year
  Sex: Female
  Weight: 46 kg

DRUGS (6)
  1. TEMOZOLOMIDE CAPSULES [Suspect]
     Indication: GLIOBLASTOMA MULTIFORME
     Dosage: SEE IMAGE
     Route: 048
     Dates: start: 20060327, end: 20060613
  2. RADIATION THERAPY [Concomitant]
  3. KYTRIL [Concomitant]
  4. ZONISAMIDE [Concomitant]
  5. MAGNESIUM OXIDE [Concomitant]
  6. BACTRAMIN GRANULES [Concomitant]

REACTIONS (1)
  - REFLUX OESOPHAGITIS [None]
